FAERS Safety Report 9995980 (Version 2)
Quarter: 2014Q2

REPORT INFORMATION
  Report Type: Report from Study
  Country: AU (occurrence: AU)
  Receive Date: 20140311
  Receipt Date: 20140430
  Transmission Date: 20141212
  Serious: Yes (Other)
  Sender: FDA-Public Use
  Company Number: AU-SA-2014SA029480

PATIENT
  Age: 80 Year
  Sex: Female

DRUGS (10)
  1. LANTUS [Suspect]
     Indication: DIABETES MELLITUS
     Dosage: DOSE:60 UNIT(S)
     Route: 065
     Dates: start: 20140218
  2. ATACAND [Concomitant]
  3. METOPROLOL [Concomitant]
  4. FERRO-COMPLEX [Concomitant]
  5. ISOSORBIDE [Concomitant]
  6. NEXIUM [Concomitant]
  7. ROCALTROL [Concomitant]
  8. UREMIDE [Concomitant]
  9. ASCORBIC ACID/LECITHINUM SOYA/RETINOL/SELENIUM/TOCOPHEROL/ZINC [Concomitant]
  10. NOVORAPID [Concomitant]

REACTIONS (1)
  - Kidney infection [Recovered/Resolved]
